FAERS Safety Report 14685971 (Version 1)
Quarter: 2018Q1

REPORT INFORMATION
  Report Type: Spontaneous
  Country: US (occurrence: US)
  Receive Date: 20180326
  Receipt Date: 20180326
  Transmission Date: 20180509
  Serious: Yes (Other)
  Sender: FDA-Public Use
  Company Number: None

PATIENT
  Age: 69 Year
  Sex: Female
  Weight: 54 kg

DRUGS (1)
  1. XOLAIR [Suspect]
     Active Substance: OMALIZUMAB
     Indication: CHRONIC SPONTANEOUS URTICARIA
     Dosage: ?          OTHER FREQUENCY:EVERY 4 WEEKS;?
     Route: 058
     Dates: start: 20150923, end: 20171019

REACTIONS (7)
  - Fatigue [None]
  - Myalgia [None]
  - Cough [None]
  - Malaise [None]
  - Blood immunoglobulin M increased [None]
  - Leukocytosis [None]
  - Influenza like illness [None]

NARRATIVE: CASE EVENT DATE: 20171019
